FAERS Safety Report 8122376-4 (Version None)
Quarter: 2012Q1

REPORT INFORMATION
  Report Type: 
  Country: None (occurrence: None)
  Receive Date: 20120208
  Receipt Date: 20120203
  Transmission Date: 20120608
  Serious: Yes (Other)
  Sender: FDA-Public Use
  Company Number: US-GLAXOSMITHKLINE-A0950527A

PATIENT
  Age: 78 Year
  Sex: Male
  Weight: 91.4 kg

DRUGS (7)
  1. CRESTOR [Concomitant]
     Dosage: 10MG PER DAY
     Route: 048
  2. TIZANIDINE HCL [Concomitant]
     Dosage: 2MG PER DAY
     Route: 048
  3. ASPIRIN [Concomitant]
     Dosage: 81MG PER DAY
     Route: 048
  4. VOTRIENT [Suspect]
     Indication: THYROID CANCER
     Dosage: 800MG PER DAY
     Route: 065
     Dates: start: 20111012
  5. SYNTHROID [Concomitant]
     Route: 048
  6. AGGRENOX [Concomitant]
     Route: 048
  7. LISINOPRIL [Concomitant]
     Dosage: 10MG PER DAY
     Route: 048

REACTIONS (16)
  - DYSGEUSIA [None]
  - MUSCLE SPASMS [None]
  - FATIGUE [None]
  - NUCLEAR MAGNETIC RESONANCE IMAGING ABNORMAL [None]
  - WHEEZING [None]
  - WEIGHT DECREASED [None]
  - MALAISE [None]
  - LIVER FUNCTION TEST ABNORMAL [None]
  - DIARRHOEA [None]
  - DRY MOUTH [None]
  - INFLUENZA [None]
  - APHONIA [None]
  - ARTHRALGIA [None]
  - HICCUPS [None]
  - DECREASED APPETITE [None]
  - DYSPHONIA [None]
